FAERS Safety Report 20163726 (Version 8)
Quarter: 2025Q2

REPORT INFORMATION
  Report Type: Spontaneous
  Country: JP (occurrence: JP)
  Receive Date: 20211209
  Receipt Date: 20250417
  Transmission Date: 20250717
  Serious: Yes (Other)
  Sender: UNITED THERAPEUTICS
  Company Number: JP-UNITED THERAPEUTICS-UNT-2021-021466

PATIENT
  Age: 3 Year
  Sex: Female

DRUGS (45)
  1. UNITUXIN [Suspect]
     Active Substance: DINUTUXIMAB
     Indication: Neuroblastoma
     Route: 041
     Dates: start: 20211018, end: 20211021
  2. UNITUXIN [Suspect]
     Active Substance: DINUTUXIMAB
     Route: 041
     Dates: start: 20211115, end: 20211118
  3. UNITUXIN [Suspect]
     Active Substance: DINUTUXIMAB
     Route: 041
     Dates: start: 20211206, end: 20211209
  4. UNITUXIN [Suspect]
     Active Substance: DINUTUXIMAB
     Route: 041
     Dates: start: 20220111, end: 20220114
  5. UNITUXIN [Suspect]
     Active Substance: DINUTUXIMAB
     Route: 041
     Dates: start: 20220131, end: 20220203
  6. UNITUXIN [Suspect]
     Active Substance: DINUTUXIMAB
     Route: 041
     Dates: start: 20220228, end: 20220303
  7. FILGRASTIM [Suspect]
     Active Substance: FILGRASTIM
     Indication: Neuroblastoma
     Dates: start: 20211015, end: 20211024
  8. FILGRASTIM [Suspect]
     Active Substance: FILGRASTIM
     Dates: start: 20211203, end: 20211206
  9. FILGRASTIM [Suspect]
     Active Substance: FILGRASTIM
     Dates: start: 20211209, end: 20211212
  10. FILGRASTIM [Suspect]
     Active Substance: FILGRASTIM
     Dates: start: 20211215, end: 20211216
  11. FILGRASTIM [Suspect]
     Active Substance: FILGRASTIM
     Dates: start: 20220128, end: 20220131
  12. FILGRASTIM [Suspect]
     Active Substance: FILGRASTIM
     Dates: start: 20220203, end: 20220207
  13. TECELEUKIN [Suspect]
     Active Substance: TECELEUKIN
     Indication: Neuroblastoma
     Route: 041
     Dates: start: 20211108, end: 20211111
  14. TECELEUKIN [Suspect]
     Active Substance: TECELEUKIN
     Route: 041
     Dates: start: 20211115, end: 20211118
  15. TECELEUKIN [Suspect]
     Active Substance: TECELEUKIN
     Route: 041
     Dates: start: 20220104, end: 20220107
  16. TECELEUKIN [Suspect]
     Active Substance: TECELEUKIN
     Route: 041
     Dates: start: 20220111, end: 20220114
  17. TECELEUKIN [Suspect]
     Active Substance: TECELEUKIN
     Route: 041
     Dates: start: 20220221, end: 20220224
  18. TECELEUKIN [Suspect]
     Active Substance: TECELEUKIN
     Route: 041
     Dates: start: 20220228, end: 20220303
  19. MORPHINE HYDROCHLORIDE [Suspect]
     Active Substance: MORPHINE HYDROCHLORIDE
     Indication: Pain in extremity
     Dates: start: 20211018, end: 20211022
  20. MORPHINE HYDROCHLORIDE [Suspect]
     Active Substance: MORPHINE HYDROCHLORIDE
     Indication: Prophylaxis
     Dates: start: 20211115, end: 20211118
  21. MORPHINE HYDROCHLORIDE [Suspect]
     Active Substance: MORPHINE HYDROCHLORIDE
     Dates: start: 20211206, end: 20211209
  22. MORPHINE HYDROCHLORIDE [Suspect]
     Active Substance: MORPHINE HYDROCHLORIDE
     Dates: start: 20220111, end: 20220114
  23. MORPHINE HYDROCHLORIDE [Suspect]
     Active Substance: MORPHINE HYDROCHLORIDE
     Dates: start: 20220131, end: 20220203
  24. MORPHINE HYDROCHLORIDE [Suspect]
     Active Substance: MORPHINE HYDROCHLORIDE
     Dates: start: 20220228, end: 20220228
  25. ACETAMINOPHEN [Concomitant]
     Active Substance: ACETAMINOPHEN
     Indication: Pyrexia
     Dates: start: 20211018, end: 20211022
  26. ACETAMINOPHEN [Concomitant]
     Active Substance: ACETAMINOPHEN
     Indication: Prophylaxis
     Dates: start: 20211108, end: 20211111
  27. ACETAMINOPHEN [Concomitant]
     Active Substance: ACETAMINOPHEN
     Dates: start: 20211115, end: 20211118
  28. ACETAMINOPHEN [Concomitant]
     Active Substance: ACETAMINOPHEN
     Dates: start: 20211206, end: 20211209
  29. ACETAMINOPHEN [Concomitant]
     Active Substance: ACETAMINOPHEN
     Dates: start: 20220104, end: 20220107
  30. ACETAMINOPHEN [Concomitant]
     Active Substance: ACETAMINOPHEN
     Dates: start: 20220111, end: 20220114
  31. ACETAMINOPHEN [Concomitant]
     Active Substance: ACETAMINOPHEN
     Dates: start: 20220131, end: 20220203
  32. ACETAMINOPHEN [Concomitant]
     Active Substance: ACETAMINOPHEN
     Dates: start: 20220221, end: 20220224
  33. ACETAMINOPHEN [Concomitant]
     Active Substance: ACETAMINOPHEN
     Dates: start: 20220228, end: 20220303
  34. HYDROXYZINE [Concomitant]
     Active Substance: HYDROXYZINE HYDROCHLORIDE
     Indication: Prophylaxis
     Dates: start: 20211018, end: 20211022
  35. HYDROXYZINE [Concomitant]
     Active Substance: HYDROXYZINE HYDROCHLORIDE
     Dates: start: 20211108, end: 20211111
  36. HYDROXYZINE [Concomitant]
     Active Substance: HYDROXYZINE HYDROCHLORIDE
     Dates: start: 20211115, end: 20211118
  37. HYDROXYZINE [Concomitant]
     Active Substance: HYDROXYZINE HYDROCHLORIDE
     Dates: start: 20211206, end: 20211209
  38. HYDROXYZINE [Concomitant]
     Active Substance: HYDROXYZINE HYDROCHLORIDE
     Dates: start: 20220104, end: 20220107
  39. HYDROXYZINE [Concomitant]
     Active Substance: HYDROXYZINE HYDROCHLORIDE
     Dates: start: 20220111, end: 20220114
  40. HYDROXYZINE [Concomitant]
     Active Substance: HYDROXYZINE HYDROCHLORIDE
     Dates: start: 20220131, end: 20220203
  41. HYDROXYZINE [Concomitant]
     Active Substance: HYDROXYZINE HYDROCHLORIDE
     Dates: start: 20220221, end: 20220224
  42. HYDROXYZINE [Concomitant]
     Active Substance: HYDROXYZINE HYDROCHLORIDE
     Dates: start: 20220228, end: 20220303
  43. LASIX [Concomitant]
     Active Substance: FUROSEMIDE
     Indication: Prophylaxis
     Dates: start: 20211110, end: 20211110
  44. LASIX [Concomitant]
     Active Substance: FUROSEMIDE
     Indication: Eyelid oedema
     Dates: start: 20220106, end: 20220107
  45. Rinderon [Concomitant]
     Indication: Pyrexia
     Dates: start: 20220307, end: 20220313

REACTIONS (23)
  - Urinary retention [Recovered/Resolved]
  - Pulmonary oedema [Recovered/Resolved]
  - Hypoxia [Recovered/Resolved]
  - Hallucination [Recovered/Resolved]
  - Pain in extremity [Recovered/Resolved]
  - Pyrexia [Recovered/Resolved]
  - White blood cell count increased [Recovered/Resolved]
  - Eyelid oedema [Recovered/Resolved]
  - Pyrexia [Recovered/Resolved]
  - Pyrexia [Recovered/Resolved]
  - Eyelid oedema [Recovered/Resolved]
  - Vomiting [Recovered/Resolved]
  - Pyrexia [Recovered/Resolved]
  - Eyelid oedema [Recovered/Resolved]
  - White blood cell count increased [Not Recovered/Not Resolved]
  - Weight increased [Recovered/Resolved]
  - Eyelid oedema [Recovered/Resolved]
  - Pyrexia [Recovered/Resolved]
  - Eyelid oedema [Recovered/Resolved]
  - Leukocytosis [Recovered/Resolved]
  - Pyrexia [Recovered/Resolved]
  - Pyrexia [Recovered/Resolved]
  - Pyrexia [Recovered/Resolved]

NARRATIVE: CASE EVENT DATE: 20211018
